FAERS Safety Report 8790660 (Version 1)
Quarter: 2012Q4

REPORT INFORMATION
  Report Type: Spontaneous
  Country: US (occurrence: None)
  Receive Date: 20120913
  Receipt Date: 20120913
  Transmission Date: 20130627
  Serious: Yes (Life-Threatening, Hospitalization, Other)
  Sender: FDA-Public Use
  Company Number: None

PATIENT
  Age: 32 Year
  Sex: Female
  Weight: 56.7 kg

DRUGS (2)
  1. CEFDINIR [Suspect]
     Indication: BRONCHITIS
     Dates: start: 20120820, end: 20120825
  2. CEFDINIR [Suspect]
     Indication: SINUSITIS
     Dates: start: 20120820, end: 20120825

REACTIONS (5)
  - Diarrhoea [None]
  - Clostridium difficile infection [None]
  - Pain [None]
  - Malaise [None]
  - Loss of employment [None]
